FAERS Safety Report 13961203 (Version 1)
Quarter: 2017Q3

REPORT INFORMATION
  Report Type: Spontaneous
  Country: US (occurrence: US)
  Receive Date: 20170912
  Receipt Date: 20170912
  Transmission Date: 20171128
  Serious: Yes (Hospitalization, Other)
  Sender: FDA-Public Use
  Company Number: US-PFIZER INC-2016025385

PATIENT
  Age: 57 Year
  Sex: Female
  Weight: 69.39 kg

DRUGS (3)
  1. IFOSFAMIDE. [Suspect]
     Active Substance: IFOSFAMIDE
     Dosage: UNK
  2. CARBOPLATIN. [Suspect]
     Active Substance: CARBOPLATIN
     Dosage: UNK
  3. ETOPOSIDE. [Suspect]
     Active Substance: ETOPOSIDE
     Dosage: UNK

REACTIONS (2)
  - Full blood count decreased [Unknown]
  - Pulmonary fibrosis [Unknown]
